FAERS Safety Report 4762529-6 (Version None)
Quarter: 2005Q3

REPORT INFORMATION
  Report Type: 
  Country: None (occurrence: None)
  Receive Date: 20050902
  Receipt Date: 20050613
  Transmission Date: 20060218
  Serious: Yes (Hospitalization)
  Sender: FDA-Public Use
  Company Number: 2005S1004788

PATIENT
  Age: 74 Year
  Sex: Male

DRUGS (1)
  1. FENTANYL [Suspect]
     Indication: PAIN
     Dosage: 50 MCG/HR; Q3D; TDER
     Route: 062
     Dates: start: 20050501

REACTIONS (1)
  - RESPIRATORY DEPRESSION [None]
